FAERS Safety Report 23115042 (Version 2)
Quarter: 2024Q1

REPORT INFORMATION
  Report Type: Spontaneous
  Country: US (occurrence: US)
  Receive Date: 20231027
  Receipt Date: 20240102
  Transmission Date: 20240410
  Serious: No
  Sender: FDA-Public Use
  Company Number: US-VIIV HEALTHCARE LIMITED-US2023AMR145406

PATIENT
  Age: 57 Year
  Sex: Male
  Weight: 80.6 kg

DRUGS (3)
  1. CABOTEGRAVIR [Suspect]
     Active Substance: CABOTEGRAVIR
     Indication: Product used for unknown indication
     Dosage: UNK,600 MG
     Route: 030
     Dates: start: 20230719
  2. CABOTEGRAVIR [Suspect]
     Active Substance: CABOTEGRAVIR
  3. CABOTEGRAVIR [Suspect]
     Active Substance: CABOTEGRAVIR

REACTIONS (3)
  - Pain [Recovered/Resolved]
  - Swelling [Recovered/Resolved]
  - Sitting disability [Unknown]

NARRATIVE: CASE EVENT DATE: 20230719
